FAERS Safety Report 7589053-X (Version None)
Quarter: 2011Q3

REPORT INFORMATION
  Report Type: 
  Country: None (occurrence: None)
  Receive Date: 20110705
  Receipt Date: 20110125
  Transmission Date: 20111222
  Serious: Yes (Other)
  Sender: FDA-Public Use
  Company Number: BG-JNJFOC-20110107649

PATIENT
  Age: 12 Year
  Sex: Female

DRUGS (3)
  1. METHYLPREDNISOLONE [Concomitant]
     Indication: DERMATOMYOSITIS
     Dosage: FOR ONE YEAR
     Route: 065
  2. METHYLPREDNISOLONE [Concomitant]
     Dosage: FOR 15 DAYS PRIOR TO CURENT PRESENTATION
     Route: 065
  3. KETOCONAZOLE [Suspect]
     Indication: ANTIFUNGAL PROPHYLAXIS
     Route: 048

REACTIONS (1)
  - ACUTE GENERALISED EXANTHEMATOUS PUSTULOSIS [None]
